FAERS Safety Report 9392970 (Version 4)
Quarter: 2014Q2

REPORT INFORMATION
  Report Type: Spontaneous
  Country: US (occurrence: US)
  Receive Date: 20130710
  Receipt Date: 20140509
  Transmission Date: 20141212
  Serious: No
  Sender: FDA-Public Use
  Company Number: US-PFIZER INC-2013201655

PATIENT
  Sex: Male

DRUGS (2)
  1. LYRICA [Suspect]
     Dosage: 150 MG, UNK
  2. LYRICA [Suspect]
     Dosage: 200 MG, UNK

REACTIONS (4)
  - Drug prescribing error [Unknown]
  - Laceration [Unknown]
  - Drug ineffective [Unknown]
  - Drug withdrawal syndrome [Unknown]
